FAERS Safety Report 5251943-0 (Version None)
Quarter: 2007Q1

REPORT INFORMATION
  Report Type: 
  Country: None (occurrence: None)
  Receive Date: 20070228
  Receipt Date: 20070216
  Transmission Date: 20070707
  Serious: Yes (Death, Life-Threatening, Hospitalization)
  Sender: FDA-Public Use
  Company Number: US-MERCK-0701USA04395

PATIENT
  Age: 57 Year
  Sex: Female
  Weight: 159 kg

DRUGS (3)
  1. JANUVIA [Suspect]
     Indication: DIABETES MELLITUS
     Route: 048
     Dates: start: 20070102, end: 20070101
  2. LANTUS [Concomitant]
     Route: 058
  3. INSULIN [Concomitant]
     Route: 058

REACTIONS (2)
  - DEATH [None]
  - DYSPNOEA [None]
